FAERS Safety Report 10429805 (Version 1)
Quarter: 2014Q3

REPORT INFORMATION
  Report Type: Spontaneous
  Country: US (occurrence: US)
  Receive Date: 20140904
  Receipt Date: 20140904
  Transmission Date: 20150326
  Serious: Yes (Hospitalization)
  Sender: FDA-Public Use
  Company Number: US-BAUSCH-BL-2014-003985

PATIENT
  Age: 19 Year
  Sex: Male

DRUGS (2)
  1. XENAZINE [Suspect]
     Active Substance: TETRABENAZINE
     Indication: CEREBRAL PALSY
  2. XENAZINE [Suspect]
     Active Substance: TETRABENAZINE
     Indication: DIPLEGIA
     Route: 048
     Dates: start: 20140727

REACTIONS (2)
  - Off label use [Recovered/Resolved]
  - Muscle spasms [Unknown]

NARRATIVE: CASE EVENT DATE: 201407
